FAERS Safety Report 7979676-8 (Version None)
Quarter: 2011Q4

REPORT INFORMATION
  Report Type: 
  Country: None (occurrence: None)
  Receive Date: 20111214
  Receipt Date: 20111208
  Transmission Date: 20120403
  Serious: Yes (Hospitalization)
  Sender: FDA-Public Use
  Company Number: RU-ROCHE-1020970

PATIENT
  Sex: Female
  Weight: 53 kg

DRUGS (4)
  1. PEGINTERFERON ALFA-2A [Suspect]
     Indication: HEPATITIS C
     Dosage: FORM:SPI
     Route: 058
     Dates: start: 20111026
  2. FEXOFENADINE [Concomitant]
     Indication: RASH
     Route: 048
     Dates: start: 20111123
  3. BLINDED BI 201335 (HCV PROTEASE INHIBITOR) [Suspect]
     Indication: HEPATITIS C
     Route: 048
     Dates: start: 20111026, end: 20111125
  4. COPEGUS [Suspect]
     Indication: HEPATITIS C
     Route: 048
     Dates: start: 20111026

REACTIONS (2)
  - TOXIC SKIN ERUPTION [None]
  - RASH [None]
